FAERS Safety Report 8301127-4 (Version None)
Quarter: 2012Q2

REPORT INFORMATION
  Report Type: 
  Country: None (occurrence: None)
  Receive Date: 20120420
  Receipt Date: 20120413
  Transmission Date: 20120825
  Serious: Yes (Hospitalization, Other)
  Sender: FDA-Public Use
  Company Number: CZ-ASTRAZENECA-2012SE09656

PATIENT
  Age: 24071 Day
  Sex: Male

DRUGS (31)
  1. INSULINUM GLULISINUM [Concomitant]
     Indication: DIABETES MELLITUS
     Route: 058
  2. FENOFIBRATE [Concomitant]
     Indication: HYPERLIPIDAEMIA
     Route: 048
     Dates: end: 20111208
  3. DOBUTAMIN [Concomitant]
     Indication: HYPOTENSION
     Route: 042
     Dates: start: 20111210, end: 20111214
  4. ACETAMINOPHEN [Concomitant]
     Indication: PYREXIA
     Route: 048
     Dates: start: 20111206, end: 20111207
  5. FUROSEMIDE [Concomitant]
     Indication: RENAL FAILURE
     Route: 048
     Dates: start: 20110110
  6. FUROSEMIDE [Concomitant]
     Route: 042
     Dates: start: 20111210, end: 20111211
  7. PANTOPRAZOLE [Concomitant]
     Indication: GASTROINTESTINAL HAEMORRHAGE
     Route: 048
     Dates: start: 20111213
  8. AZD6140 [Suspect]
     Indication: CORONARY ARTERY DISEASE
     Route: 048
     Dates: start: 20111123, end: 20111208
  9. HYDROCHLOROTHIAZIDE [Suspect]
     Indication: HYPERTENSION
     Route: 048
     Dates: end: 20111207
  10. AMILORIDE HYDROCHLORIDE [Suspect]
     Indication: HYPERTENSION
     Route: 048
     Dates: end: 20111207
  11. ATORVASTATIN [Concomitant]
     Indication: HYPERLIPIDAEMIA
     Route: 048
     Dates: end: 20111212
  12. INSULINUM GLARGINUM [Concomitant]
     Indication: DIABETES MELLITUS
     Route: 058
  13. AMLODIPINE [Concomitant]
     Indication: HYPERTENSION
     Route: 048
     Dates: end: 20111208
  14. PERINDOPRIL ERBUMINE [Concomitant]
     Indication: HYPERTENSION
     Route: 048
     Dates: end: 20111208
  15. DIGOXIN [Concomitant]
     Indication: ATRIAL FIBRILLATION
     Route: 042
     Dates: start: 20111210, end: 20111210
  16. AMIODARONE HCL [Concomitant]
     Indication: ATRIAL FIBRILLATION
     Route: 048
     Dates: start: 20111212
  17. CIPROFLOXACIN [Concomitant]
     Indication: BRONCHOPNEUMONIA
     Route: 042
     Dates: start: 20111210, end: 20111230
  18. LOSARTAN POTASSIUM [Concomitant]
     Indication: HYPERTENSION
     Route: 048
     Dates: end: 20111206
  19. ALLOPURINOL [Concomitant]
     Indication: HYPERURICAEMIA
     Route: 048
     Dates: end: 20111212
  20. ENOXAPARIN [Concomitant]
     Indication: THROMBOSIS PROPHYLAXIS
     Route: 058
     Dates: start: 20111208, end: 20111213
  21. AMOXILILIN+ACIDUM CLAVULANICUM [Concomitant]
     Indication: BRONCHOPNEUMONIA
     Route: 042
     Dates: start: 20111206, end: 20120120
  22. BIMATOPROSTUM [Concomitant]
     Indication: DIABETIC RETINOPATHY
     Route: 047
  23. TIMOLOL MALEATE [Concomitant]
     Indication: DIABETIC RETINOPATHY
     Route: 047
  24. PARACETAMOLUM [Concomitant]
     Indication: PYREXIA
     Route: 048
     Dates: start: 20111208, end: 20120108
  25. EPINEPHRINE [Concomitant]
     Indication: DUODENAL ULCER HAEMORRHAGE
     Dosage: ENDOSCOPIC INJECTION
     Dates: start: 20111213, end: 20111213
  26. PENTOXIFYLLINE [Concomitant]
     Indication: DIABETIC VASCULAR DISORDER
     Route: 048
     Dates: end: 20111208
  27. DORZOLAMIDUM [Concomitant]
     Indication: DIABETIC RETINOPATHY
     Route: 047
  28. NORADRENALIN [Concomitant]
     Indication: HYPOTENSION
     Route: 042
     Dates: start: 20111210, end: 20111215
  29. ANOPYRIN [Suspect]
     Route: 048
     Dates: end: 20111212
  30. BISOPROLOL FUMARATE [Concomitant]
     Indication: MYOCARDIAL INFARCTION
     Route: 048
     Dates: end: 20111212
  31. METOPROLOL TARTRATE [Concomitant]
     Indication: ATRIAL FIBRILLATION
     Route: 048
     Dates: start: 20111212

REACTIONS (7)
  - BRONCHOPNEUMONIA [None]
  - TRAUMATIC HAEMATOMA [None]
  - DUODENAL ULCER HAEMORRHAGE [None]
  - ABSCESS LIMB [None]
  - GASTRIC ULCER HAEMORRHAGE [None]
  - ANAEMIA [None]
  - RENAL FAILURE ACUTE [None]
